FAERS Safety Report 5025625-4 (Version None)
Quarter: 2006Q2

REPORT INFORMATION
  Report Type: 
  Country: None (occurrence: None)
  Receive Date: 20060426
  Receipt Date: 20060314
  Transmission Date: 20061013
  Serious: Yes (Other)
  Sender: FDA-Public Use
  Company Number: 2006036640

PATIENT
  Age: 52 Year
  Sex: Female

DRUGS (8)
  1. LYRICA [Suspect]
     Indication: FIBROMYALGIA
     Dosage: 150 MG (50 MG, 3 IN 1 D)
     Dates: start: 20051101
  2. XANAX [Concomitant]
  3. CYMBALTA [Concomitant]
  4. LAMICTAL [Concomitant]
  5. ALL OTHER THERAPEUTIC PRODUCTS (ALL OTHER THERAPEUTIC PRODUCTS) [Concomitant]
  6. ACTONEL [Concomitant]
  7. HYDROCHLOROTHIAZIDE [Concomitant]
  8. LOTENSIN [Concomitant]

REACTIONS (2)
  - HYPOMANIA [None]
  - SUICIDAL IDEATION [None]
